FAERS Safety Report 4865516-2 (Version None)
Quarter: 2005Q4

REPORT INFORMATION
  Report Type: 
  Country: None (occurrence: None)
  Receive Date: 20051223
  Receipt Date: 20050308
  Transmission Date: 20060501
  Serious: Yes (Death)
  Sender: FDA-Public Use
  Company Number: CA-ROCHE-398090

PATIENT
  Age: 86 Year
  Sex: Female

DRUGS (6)
  1. TAMIFLU [Suspect]
     Route: 048
     Dates: start: 20050208, end: 20050208
  2. TAMIFLU [Suspect]
     Route: 048
     Dates: start: 20050209, end: 20050213
  3. TAMIFLU [Suspect]
     Route: 048
     Dates: start: 20050214, end: 20050227
  4. LASIX [Concomitant]
     Indication: ATRIAL FIBRILLATION
     Route: 048
     Dates: end: 20050208
  5. LANOXIN [Concomitant]
     Indication: ATRIAL FIBRILLATION
     Route: 048
  6. LEVAQUIN [Concomitant]
     Route: 042

REACTIONS (2)
  - CARDIAC FAILURE ACUTE [None]
  - PNEUMONIA [None]
